FAERS Safety Report 7817971-3 (Version None)
Quarter: 2011Q4

REPORT INFORMATION
  Report Type: 
  Country: None (occurrence: None)
  Receive Date: 20111017
  Receipt Date: 20111007
  Transmission Date: 20120403
  Serious: Yes (Other)
  Sender: FDA-Public Use
  Company Number: JP-GLAXOSMITHKLINE-B0754551A

PATIENT
  Age: 49 Year
  Sex: Male

DRUGS (4)
  1. CYMBALTA [Concomitant]
     Indication: DEPRESSION
     Dosage: 40MG PER DAY
     Route: 048
  2. PAXIL [Suspect]
     Indication: DEPRESSION
     Dosage: 10MG PER DAY
     Route: 048
     Dates: start: 20110601
  3. RISUMIC [Concomitant]
     Route: 048
  4. ABILIFY [Concomitant]
     Route: 048

REACTIONS (1)
  - LOSS OF CONSCIOUSNESS [None]
